FAERS Safety Report 5075219-X (Version None)
Quarter: 2006Q3

REPORT INFORMATION
  Report Type: 
  Country: None (occurrence: None)
  Receive Date: 20060804
  Receipt Date: 20060720
  Transmission Date: 20061208
  Serious: Yes (Other)
  Sender: FDA-Public Use
  Company Number: US017223

PATIENT
  Age: 24 Month
  Sex: Female

DRUGS (1)
  1. ACTIQ (SUGAR-FREE) [Suspect]
     Dosage: 1200 UG ONCE BUCCAL
     Route: 002
     Dates: start: 20040816, end: 20040816

REACTIONS (3)
  - ACCIDENTAL DRUG INTAKE BY CHILD [None]
  - LETHARGY [None]
  - SOMNOLENCE [None]
